FAERS Safety Report 10929555 (Version 3)
Quarter: 2015Q2

REPORT INFORMATION
  Report Type: Spontaneous
  Country: FR (occurrence: FR)
  Receive Date: 20150319
  Receipt Date: 20150604
  Transmission Date: 20150821
  Serious: Yes (Other)
  Sender: FDA-Public Use
  Company Number: FR-ACTAVIS-2015-05115

PATIENT
  Age: 77 Year
  Sex: Female

DRUGS (3)
  1. OMEPRAZOLE ACTAVIS [Suspect]
     Active Substance: OMEPRAZOLE
     Indication: PRODUCT USED FOR UNKNOWN INDICATION
     Dosage: 20 MG, DAILY
     Route: 048
     Dates: start: 20150301, end: 201503
  2. RAMIPRIL. [Concomitant]
     Active Substance: RAMIPRIL
     Indication: HYPERTENSION
     Dosage: UNKNOWN
     Route: 065
  3. NICARDIPINE [Concomitant]
     Active Substance: NICARDIPINE
     Indication: HYPERTENSION
     Dosage: UNKNOWN
     Route: 065

REACTIONS (5)
  - Product substitution issue [Not Recovered/Not Resolved]
  - Oliguria [Recovered/Resolved]
  - Palpitations [Recovered/Resolved]
  - Peripheral swelling [Recovered/Resolved]
  - Hypertension [Recovered/Resolved]

NARRATIVE: CASE EVENT DATE: 20150301
